FAERS Safety Report 8906255 (Version 1)
Quarter: 2012Q4

REPORT INFORMATION
  Report Type: Spontaneous
  Country: US (occurrence: None)
  Receive Date: 20121112
  Receipt Date: 20121112
  Transmission Date: 20130627
  Serious: No
  Sender: FDA-Public Use
  Company Number: None

PATIENT
  Age: 64 Year
  Sex: Female
  Weight: 48.08 kg

DRUGS (1)
  1. LEVAQUIN [Suspect]
     Indication: SINUS DISORDER
     Route: 042
     Dates: start: 20100518, end: 20100525

REACTIONS (6)
  - Rotator cuff syndrome [None]
  - Activities of daily living impaired [None]
  - Weight decreased [None]
  - Pain [None]
  - Abasia [None]
  - Impaired driving ability [None]
